FAERS Safety Report 13525088 (Version 1)
Quarter: 2017Q2

REPORT INFORMATION
  Report Type: Spontaneous
  Country: US (occurrence: US)
  Receive Date: 20170508
  Receipt Date: 20170508
  Transmission Date: 20170830
  Serious: No
  Sender: FDA-Public Use
  Company Number: US-ROCHE-1135395

PATIENT
  Sex: Female

DRUGS (8)
  1. GLUCOPHAGE [Concomitant]
     Active Substance: METFORMIN HYDROCHLORIDE
  2. HUMALOG [Concomitant]
     Active Substance: INSULIN LISPRO
  3. AVASTIN [Suspect]
     Active Substance: BEVACIZUMAB
     Route: 050
     Dates: start: 20120813, end: 20120813
  4. AVASTIN [Suspect]
     Active Substance: BEVACIZUMAB
     Route: 050
     Dates: start: 20120702, end: 20120702
  5. LANTUS [Concomitant]
     Active Substance: INSULIN GLARGINE
  6. AVASTIN [Suspect]
     Active Substance: BEVACIZUMAB
     Indication: DIABETIC RETINAL OEDEMA
     Route: 050
     Dates: start: 20120910, end: 20120910
  7. ASA [Concomitant]
     Active Substance: ASPIRIN
     Route: 065
  8. LUTEIN [Concomitant]
     Active Substance: LUTEIN

REACTIONS (1)
  - Drug ineffective [Unknown]
